FAERS Safety Report 23567849 (Version 1)
Quarter: 2024Q1

REPORT INFORMATION
  Report Type: Spontaneous
  Country: US (occurrence: US)
  Receive Date: 20240226
  Receipt Date: 20240226
  Transmission Date: 20240410
  Serious: No
  Sender: FDA-Public Use
  Company Number: US-SA-SAC20240221000429

PATIENT
  Sex: Female

DRUGS (16)
  1. DUPIXENT [Suspect]
     Active Substance: DUPILUMAB
     Indication: Dermatitis atopic
     Dosage: 300 MG, QOW
     Route: 058
  2. MINERALS\VITAMINS [Concomitant]
     Active Substance: MINERALS\VITAMINS
     Dosage: UNK, QD
  3. MUCINEX FAST MAX COLD, FLU AND SORE THROAT [Concomitant]
     Dosage: MUCINEX FAST-MAX COLD-FLU-THRT
  4. ADVIL COLD AND SINUS [Concomitant]
     Active Substance: IBUPROFEN\PSEUDOEPHEDRINE HYDROCHLORIDE
     Dosage: ADVIL COLD-SINUS 200MG-30MG CAPSULE
  5. CALCIUM ASCORBATE [Concomitant]
     Active Substance: CALCIUM ASCORBATE
  6. IRON [Concomitant]
     Active Substance: IRON
     Dosage: 325(65) MG
  7. FISH OIL [Concomitant]
     Active Substance: FISH OIL
  8. FIBER [Concomitant]
  9. PROBIOMAX [Concomitant]
  10. CALCIUM\VITAMIN D [Concomitant]
     Active Substance: CALCIUM\VITAMIN D
     Dosage: 600MG-12.5
  11. ALCLOMETASONE DIPROPIONATE [Concomitant]
     Active Substance: ALCLOMETASONE DIPROPIONATE
  12. KETOCONAZOLE [Concomitant]
     Active Substance: KETOCONAZOLE
  13. ESTRADIOL [Concomitant]
     Active Substance: ESTRADIOL
     Dosage: UNK UNK, QW
  14. LIPITOR [Concomitant]
     Active Substance: ATORVASTATIN CALCIUM
  15. SYSTANE HYDRATION PF PRESERVATIVE FREE [Concomitant]
     Active Substance: POLYETHYLENE GLYCOL 400\PROPYLENE GLYCOL
     Dosage: SYSTANE HYDRATION PF
  16. FLONASE ALLERGY RELIEF [Concomitant]
     Active Substance: FLUTICASONE PROPIONATE

REACTIONS (3)
  - Sinusitis [Unknown]
  - Rash [Not Recovered/Not Resolved]
  - Therapeutic response unexpected [Unknown]
